FAERS Safety Report 9812708 (Version 1)
Quarter: 2014Q1

REPORT INFORMATION
  Report Type: Spontaneous
  Country: US (occurrence: US)
  Receive Date: 20140113
  Receipt Date: 20140113
  Transmission Date: 20141002
  Serious: No
  Sender: FDA-Public Use
  Company Number: 2013SP008575

PATIENT
  Age: 54 Year
  Sex: Female

DRUGS (3)
  1. VANCOMYCIN [Suspect]
     Indication: ENDOCARDITIS
  2. PIPERACILLIN/TAZOBACTAM [Suspect]
     Indication: ENDOCARDITIS
  3. GENTAMICIN [Suspect]
     Indication: ENDOCARDITIS

REACTIONS (1)
  - Drug eruption [Unknown]
